FAERS Safety Report 7475706 (Version 4)
Quarter: 2013Q2

REPORT INFORMATION
  Report Type: Spontaneous
  Country: US (occurrence: US)
  Receive Date: 20100715
  Receipt Date: 20130530
  Transmission Date: 20140414
  Serious: Yes (Other)
  Sender: FDA-Public Use
  Company Number: US-BIOGENIDEC-2010BI022699

PATIENT
  Age: 29 Year
  Sex: Female

DRUGS (2)
  1. TYSABRI [Suspect]
     Indication: MULTIPLE SCLEROSIS
     Route: 042
     Dates: start: 20080118, end: 20130228
  2. 13-14 OTHER MEDICATION (NOS) [Concomitant]

REACTIONS (5)
  - Osteonecrosis [Not Recovered/Not Resolved]
  - Lymphocytosis [Not Recovered/Not Resolved]
  - Migraine [Recovered/Resolved]
  - Multiple sclerosis relapse [Recovered/Resolved]
  - Syncope [Recovered/Resolved]
